FAERS Safety Report 5402081-5 (Version None)
Quarter: 2007Q3

REPORT INFORMATION
  Report Type: 
  Country: None (occurrence: None)
  Receive Date: 20070727
  Receipt Date: 20070521
  Transmission Date: 20080115
  Serious: Yes (Other)
  Sender: FDA-Public Use
  Company Number: 2007327309

PATIENT
  Age: 66 Year
  Sex: Female

DRUGS (3)
  1. NICOTROL [Suspect]
     Indication: SMOKING CESSATION THERAPY
     Dosage: INHALATION
     Route: 055
  2. NICOTROL [Suspect]
     Indication: SMOKING CESSATION THERAPY
     Dosage: TRANSDERMTAL
     Route: 062
  3. NICOTINE [Suspect]
     Indication: SMOKING CESSATION THERAPY
     Dosage: TRANSDERMAL
     Route: 062

REACTIONS (13)
  - ARTERIAL STENT INSERTION [None]
  - ARTHRITIS [None]
  - BLISTER [None]
  - CARDIAC STRESS TEST ABNORMAL [None]
  - FIBROMYALGIA [None]
  - HEART RATE DECREASED [None]
  - HYPERPLASIA [None]
  - HYPERTENSION [None]
  - ILIAC ARTERY OCCLUSION [None]
  - IMPAIRED GASTRIC EMPTYING [None]
  - IRRITABILITY [None]
  - OSTEOPOROSIS [None]
  - TONGUE DISORDER [None]
